FAERS Safety Report 15250726 (Version 1)
Quarter: 2018Q3

REPORT INFORMATION
  Report Type: Spontaneous
  Country: US (occurrence: US)
  Receive Date: 20180716
  Receipt Date: 20180716
  Transmission Date: 20181010
  Serious: Yes (Life-Threatening)
  Sender: FDA-Public Use
  Company Number: None

PATIENT
  Age: 68 Year
  Sex: Female
  Weight: 89.1 kg

DRUGS (8)
  1. LOW DOSE ASA [Concomitant]
  2. VALSARTAN 160MG [Suspect]
     Active Substance: VALSARTAN
     Indication: HYPERTENSION
     Route: 048
  3. SERTRALINE [Concomitant]
     Active Substance: SERTRALINE HYDROCHLORIDE
  4. PROTONIX [Concomitant]
     Active Substance: PANTOPRAZOLE SODIUM
  5. MELATONIN [Concomitant]
     Active Substance: MELATONIN
  6. MOTRIN [Concomitant]
     Active Substance: IBUPROFEN
  7. CRESTOR [Concomitant]
     Active Substance: ROSUVASTATIN CALCIUM
  8. TYLENOL [Concomitant]
     Active Substance: ACETAMINOPHEN

REACTIONS (3)
  - Breast cancer stage I [None]
  - Progesterone receptor assay positive [None]
  - Oestrogen receptor assay positive [None]

NARRATIVE: CASE EVENT DATE: 20180601
